FAERS Safety Report 7988923-8 (Version None)
Quarter: 2011Q4

REPORT INFORMATION
  Report Type: 
  Country: None (occurrence: None)
  Receive Date: 20111219
  Receipt Date: 20111212
  Transmission Date: 20120403
  Serious: Yes (Other)
  Sender: FDA-Public Use
  Company Number: US-ELI_LILLY_AND_COMPANY-US201107006527

PATIENT
  Sex: Female
  Weight: 83.9 kg

DRUGS (10)
  1. BYETTA [Suspect]
     Dosage: 10 UG, BID
     Dates: end: 20060601
  2. VYTORIN [Concomitant]
     Dosage: 1 DF, QD
  3. FUROSEMIDE [Concomitant]
     Dosage: 40 MG, QD
     Route: 048
  4. AMARYL [Concomitant]
     Dosage: 4 MG, BID
     Route: 048
  5. LANTUS [Concomitant]
     Dosage: 100 DF, UNK
     Route: 058
  6. PROCRIT [Concomitant]
     Dosage: 1 DF, UNK
  7. BYETTA [Suspect]
     Indication: PRODUCT USED FOR UNKNOWN INDICATION
     Dosage: 5 UG, BID
     Route: 058
     Dates: start: 20050501
  8. METFORMIN HCL [Concomitant]
     Dosage: 1000 MG, TID
     Route: 048
  9. MICRO-K [Concomitant]
     Dosage: 10 MEQ, QD
     Route: 048
  10. LOTREL [Concomitant]
     Dosage: 1 DF, QD

REACTIONS (2)
  - RENAL FAILURE CHRONIC [None]
  - PANCREATITIS [None]
